FAERS Safety Report 12944366 (Version 1)
Quarter: 2016Q4

REPORT INFORMATION
  Report Type: Spontaneous
  Country: GB (occurrence: GB)
  Receive Date: 20161115
  Receipt Date: 20161115
  Transmission Date: 20170207
  Serious: Yes (Other)
  Sender: FDA-Public Use
  Company Number: GB-BAYER-2016-213295

PATIENT
  Age: 46 Year
  Sex: Female

DRUGS (2)
  1. ASPIRIN W/CLOPIDOGREL [Concomitant]
  2. ACETYLSALICYLIC ACID (} 100 MG) [Suspect]
     Active Substance: ASPIRIN

REACTIONS (2)
  - Skin discolouration [None]
  - Palpitations [None]

NARRATIVE: CASE EVENT DATE: 2007
